FAERS Safety Report 7684438-5 (Version None)
Quarter: 2011Q3

REPORT INFORMATION
  Report Type: 
  Country: None (occurrence: None)
  Receive Date: 20110816
  Receipt Date: 20110803
  Transmission Date: 20111222
  Serious: No
  Sender: FDA-Public Use
  Company Number: US-BIOGENIDEC-2011BI004920

PATIENT
  Age: 34 Year
  Sex: Female

DRUGS (2)
  1. PAIN MEDICATIONS (NOS) [Concomitant]
     Indication: PAIN
  2. TYSABRI [Suspect]
     Indication: MULTIPLE SCLEROSIS
     Route: 042
     Dates: start: 20110124

REACTIONS (9)
  - SKIN DISCOLOURATION [None]
  - FATIGUE [None]
  - OEDEMA PERIPHERAL [None]
  - JOINT SWELLING [None]
  - MALAISE [None]
  - ARTHRALGIA [None]
  - HYPERSOMNIA [None]
  - SUDDEN ONSET OF SLEEP [None]
  - PAIN IN EXTREMITY [None]
